FAERS Safety Report 7111644-0 (Version None)
Quarter: 2010Q4

REPORT INFORMATION
  Report Type: 
  Country: None (occurrence: None)
  Receive Date: 20101118
  Receipt Date: 20101108
  Transmission Date: 20110411
  Serious: Yes (Hospitalization, Other)
  Sender: FDA-Public Use
  Company Number: PHEH2008US08794

PATIENT
  Sex: Female

DRUGS (29)
  1. AREDIA [Suspect]
     Dosage: UNK
  2. ZOMETA [Suspect]
  3. FEMARA [Concomitant]
     Dosage: 2.5 MG, QD
     Route: 048
  4. PROTONIX [Concomitant]
  5. FEOSOL [Concomitant]
  6. HORMONES NOS [Concomitant]
     Dosage: UNK
     Dates: end: 20050501
  7. WARFARIN SODIUM [Concomitant]
     Dosage: UNK
  8. FUROSEMIDE [Concomitant]
     Dosage: 20 MG
  9. BERIPLEX P/N [Concomitant]
     Dosage: UNK
  10. FERROUS SULFATE [Concomitant]
     Dosage: 325 MG
  11. CIPROFLOXACIN [Concomitant]
     Dosage: 500 MG
  12. LOVENOX [Concomitant]
     Dosage: 60 MG / Q 12H
     Route: 058
  13. LASIX [Concomitant]
     Dosage: 20 MG / DAILY
  14. AMBIEN [Concomitant]
     Dosage: 10 MG / BEDTIME
  15. COUMADIN [Concomitant]
     Dosage: 4 MG / DAILY
  16. HEP-LOCK [Concomitant]
     Dosage: UNK
  17. PRILOSEC [Concomitant]
     Dosage: 20 MG/ BID
     Route: 048
  18. PERCOCET [Concomitant]
     Indication: PAIN
     Dosage: UNK
  19. MORPHINE [Concomitant]
     Dosage: UNK
  20. ENOXAPARIN SODIUM [Concomitant]
     Dosage: UNK
  21. AUGMENTIN '125' [Concomitant]
  22. LISINOPRIL [Concomitant]
  23. NIASPAN [Concomitant]
  24. NITROFURANTOIN [Concomitant]
  25. AMLODIPINE [Concomitant]
  26. URSODIOL [Concomitant]
  27. METRONIDAZOLE [Concomitant]
  28. CLINDAMYCIN [Concomitant]
  29. PRILOSEC [Concomitant]

REACTIONS (41)
  - ADENOMYOSIS [None]
  - ANHEDONIA [None]
  - ANXIETY [None]
  - ARRHYTHMIA [None]
  - ARTHROPATHY [None]
  - ASTHENIA [None]
  - BILIARY CIRRHOSIS [None]
  - BLOOD CHOLESTEROL INCREASED [None]
  - BONE DISORDER [None]
  - BONE GRAFT [None]
  - DACRYOCYSTORHINOSTOMY [None]
  - DEEP VEIN THROMBOSIS [None]
  - DENTURE WEARER [None]
  - DISABILITY [None]
  - DIVERTICULUM [None]
  - EATING DISORDER [None]
  - FISTULA [None]
  - FOOT DEFORMITY [None]
  - HYPERPLASTIC CHOLECYSTOPATHY [None]
  - HYPERTENSION [None]
  - INJURY [None]
  - IRON DEFICIENCY ANAEMIA [None]
  - LACRIMAL DUCT PROCEDURE [None]
  - LIVER DISORDER [None]
  - LYMPHADENOPATHY [None]
  - MAXILLOFACIAL OPERATION [None]
  - METASTASES TO BONE [None]
  - OEDEMA PERIPHERAL [None]
  - ONYCHOLYSIS [None]
  - OSTEONECROSIS OF JAW [None]
  - OSTEORADIONECROSIS [None]
  - PAIN [None]
  - PAIN IN EXTREMITY [None]
  - RENAL CYST [None]
  - SINUSITIS [None]
  - SWELLING FACE [None]
  - TOOTH EXTRACTION [None]
  - URINARY TRACT INFECTION [None]
  - UTERINE MALPOSITION [None]
  - VENA CAVA FILTER INSERTION [None]
  - VENOUS THROMBOSIS [None]
